FAERS Safety Report 9629276 (Version 1)
Quarter: 2013Q4

REPORT INFORMATION
  Report Type: Spontaneous
  Country: US (occurrence: US)
  Receive Date: 20131017
  Receipt Date: 20131017
  Transmission Date: 20140711
  Serious: No
  Sender: FDA-Public Use
  Company Number: US-ASTRAZENECA-2013SE67154

PATIENT
  Age: 60 Year
  Sex: Male

DRUGS (5)
  1. BYDUREON [Suspect]
     Route: 065
  2. CRESTOR [Suspect]
     Route: 048
  3. LANTUS [Suspect]
     Route: 065
  4. NORVASC [Suspect]
     Route: 065
  5. NOVOLIN [Suspect]
     Route: 065

REACTIONS (2)
  - Local swelling [Recovered/Resolved]
  - Nausea [Recovered/Resolved]
